FAERS Safety Report 21307213 (Version 6)
Quarter: 2022Q4

REPORT INFORMATION
  Report Type: Spontaneous
  Country: JP (occurrence: JP)
  Receive Date: 20220908
  Receipt Date: 20221007
  Transmission Date: 20230112
  Serious: Yes (Life-Threatening, Hospitalization, Other)
  Sender: FDA-Public Use
  Company Number: JP-GSKNCCC-Case-01566369_AE-61914

PATIENT

DRUGS (4)
  1. LAMICTAL [Suspect]
     Active Substance: LAMOTRIGINE
     Indication: Epilepsy
     Dosage: 175 MG, BID, MORNING AND EVENING
     Route: 048
     Dates: end: 20220829
  2. LAMICTAL [Suspect]
     Active Substance: LAMOTRIGINE
     Indication: Overdose
     Dosage: 8400 MG
     Route: 048
     Dates: start: 20220829, end: 20220829
  3. LAMICTAL [Suspect]
     Active Substance: LAMOTRIGINE
     Dosage: 100 MG, BID
     Route: 048
     Dates: start: 20220905
  4. RIVOTRIL [Suspect]
     Active Substance: CLONAZEPAM
     Indication: Overdose
     Dosage: 33 MG/DAY
     Route: 048
     Dates: start: 20220829, end: 20220829

REACTIONS (6)
  - Restlessness [Recovering/Resolving]
  - Toxicity to various agents [Recovering/Resolving]
  - Fall [Recovered/Resolved]
  - Suicide attempt [Recovered/Resolved]
  - Feelings of worthlessness [Recovered/Resolved]
  - Intentional overdose [Unknown]

NARRATIVE: CASE EVENT DATE: 20220829
